FAERS Safety Report 19389605 (Version 1)
Quarter: 2021Q2

REPORT INFORMATION
  Report Type: Spontaneous
  Country: CN (occurrence: CN)
  Receive Date: 20210608
  Receipt Date: 20210608
  Transmission Date: 20210717
  Serious: Yes (Other)
  Sender: FDA-Public Use
  Company Number: CN-ASTRAZENECA-2021A507142

PATIENT
  Age: 24515 Day
  Sex: Male
  Weight: 69 kg

DRUGS (3)
  1. BRILINTA [Suspect]
     Active Substance: TICAGRELOR
     Indication: ACUTE CORONARY SYNDROME
     Route: 048
     Dates: start: 20191003, end: 20191003
  2. BAYASPIRIN [Concomitant]
     Active Substance: ASPIRIN
     Route: 048
  3. ALE [Concomitant]
     Route: 048

REACTIONS (2)
  - Agitation [Recovering/Resolving]
  - Chest discomfort [Recovering/Resolving]

NARRATIVE: CASE EVENT DATE: 20191003
